FAERS Safety Report 19678500 (Version 4)
Quarter: 2021Q4

REPORT INFORMATION
  Report Type: Spontaneous
  Country: US (occurrence: US)
  Receive Date: 20210809
  Receipt Date: 20211221
  Transmission Date: 20220303
  Serious: Yes (Other)
  Sender: FDA-Public Use
  Company Number: US-PFIZER INC-2021591665

PATIENT
  Age: 58 Year
  Sex: Female

DRUGS (1)
  1. IBRANCE [Suspect]
     Active Substance: PALBOCICLIB
     Indication: Breast cancer
     Dosage: 125 MG, CYCLIC (TAKE 1 TABLET PO (ORALLY) FOR 21 DAYS, THEN NONE FOR 7 DAY)
     Route: 048
     Dates: start: 20200414

REACTIONS (2)
  - Neutropenia [Unknown]
  - Leukopenia [Unknown]
